FAERS Safety Report 9104354 (Version 2)
Quarter: 2013Q2

REPORT INFORMATION
  Report Type: Spontaneous
  Country: IT (occurrence: IT)
  Receive Date: 20130220
  Receipt Date: 20130404
  Transmission Date: 20140414
  Serious: Yes (Hospitalization)
  Sender: FDA-Public Use
  Company Number: IT-ROCHE-1192334

PATIENT
  Age: 43 Year
  Sex: Female

DRUGS (1)
  1. MABTHERA [Suspect]
     Indication: FOLLICLE CENTRE LYMPHOMA, FOLLICULAR GRADE I, II, III
     Route: 042
     Dates: start: 20110913, end: 20121023

REACTIONS (1)
  - Clonus [Unknown]
